FAERS Safety Report 16355507 (Version 1)
Quarter: 2019Q2

REPORT INFORMATION
  Report Type: Spontaneous
  Country: FR (occurrence: FR)
  Receive Date: 20190525
  Receipt Date: 20190525
  Transmission Date: 20190711
  Serious: Yes (Death)
  Sender: FDA-Public Use
  Company Number: FR-ACCORD-129277

PATIENT
  Age: 83 Year
  Sex: Male
  Weight: 78.9 kg

DRUGS (9)
  1. CIPROFLOXACIN/CIPROFLOXACIN HYDROCHLORIDE/CIPROFLOXACIN LACTATE [Suspect]
     Active Substance: CIPROFLOXACIN
     Indication: INFECTION
     Dosage: 1CP 2 / D THEN 0.5CP 2 / D
     Route: 048
     Dates: start: 20190322
  2. DOLIPRANE [Suspect]
     Active Substance: ACETAMINOPHEN
     Indication: PAIN
     Dosage: 500 MG TABLETS
     Route: 048
     Dates: start: 201901
  3. KARDEGIC [Suspect]
     Active Substance: ASPIRIN DL-LYSINE
     Indication: MYOCARDIAL ISCHAEMIA
     Dosage: 75 MG POWDER FOR ORAL SOLUTION IN SACHET-DOSE
     Route: 048
     Dates: start: 201901
  4. ZAMUDOL [Suspect]
     Active Substance: TRAMADOL HYDROCHLORIDE
     Indication: PAIN
     Route: 048
     Dates: start: 201901
  5. ELIQUIS [Suspect]
     Active Substance: APIXABAN
     Indication: MYOCARDIAL ISCHAEMIA
     Dosage: 5 MG FILM-COATED TABLETS
     Route: 048
     Dates: start: 201901
  6. PANTOPRAZOLE [Suspect]
     Active Substance: PANTOPRAZOLE
     Indication: ULCER HAEMORRHAGE
     Route: 048
     Dates: start: 201901
  7. ATORVASTATIN/ATORVASTATIN CALCIUM [Suspect]
     Active Substance: ATORVASTATIN CALCIUM
     Indication: MYOCARDIAL ISCHAEMIA
     Route: 048
     Dates: start: 201901
  8. CORDARONE [Suspect]
     Active Substance: AMIODARONE HYDROCHLORIDE
     Indication: MYOCARDIAL ISCHAEMIA
     Dosage: 200 MG, SCORED TABLET
     Route: 048
     Dates: start: 201901
  9. BISOCE [Suspect]
     Active Substance: BISOPROLOL
     Indication: HYPERTENSION
     Dosage: 2.5 MG FILM-COATED TABLETS
     Route: 048
     Dates: start: 201901

REACTIONS (4)
  - Gastric haemorrhage [Fatal]
  - Shock haemorrhagic [Fatal]
  - Rectal haemorrhage [Fatal]
  - Gastric ulcer perforation [Fatal]

NARRATIVE: CASE EVENT DATE: 201902
